FAERS Safety Report 20750106 (Version 7)
Quarter: 2024Q1

REPORT INFORMATION
  Report Type: Spontaneous
  Country: US (occurrence: US)
  Receive Date: 20220426
  Receipt Date: 20240208
  Transmission Date: 20240410
  Serious: No
  Sender: FDA-Public Use
  Company Number: US-PFIZER INC-202200611561

PATIENT
  Age: 76 Year
  Sex: Female

DRUGS (1)
  1. PREMPRO [Suspect]
     Active Substance: ESTROGENS, CONJUGATED\MEDROXYPROGESTERONE ACETATE
     Indication: Atrophic vulvovaginitis
     Dosage: 0.3 - 1.5 MG
     Route: 048

REACTIONS (2)
  - Anxiety [Unknown]
  - Product prescribing issue [Unknown]
